FAERS Safety Report 15417243 (Version 1)
Quarter: 2018Q3

REPORT INFORMATION
  Report Type: Spontaneous
  Country: US (occurrence: US)
  Receive Date: 20180917
  Receipt Date: 20180917
  Transmission Date: 20181010
  Serious: No
  Sender: FDA-Public Use
  Company Number: None

PATIENT
  Age: 40 Year
  Sex: Female

DRUGS (1)
  1. XELJANZ [Suspect]
     Active Substance: TOFACITINIB CITRATE
     Indication: POLYARTHRITIS
     Route: 048

REACTIONS (8)
  - Chills [None]
  - Nasopharyngitis [None]
  - Cold sweat [None]
  - Asthenia [None]
  - Feeling hot [None]
  - Hyperhidrosis [None]
  - Viral infection [None]
  - Malaise [None]
